FAERS Safety Report 15630454 (Version 1)
Quarter: 2018Q4

REPORT INFORMATION
  Report Type: Report from Study
  Country: BR (occurrence: BR)
  Receive Date: 20181118
  Receipt Date: 20181118
  Transmission Date: 20190205
  Serious: Yes (Hospitalization)
  Sender: FDA-Public Use
  Company Number: BR-UCBSA-2018050102

PATIENT
  Age: 13 Year
  Sex: Female
  Weight: 76 kg

DRUGS (2)
  1. TRILEPTAL [Suspect]
     Active Substance: OXCARBAZEPINE
     Indication: EPILEPSY
     Dosage: UNK
     Route: 048
  2. LEVETIRACETAM. [Suspect]
     Active Substance: LEVETIRACETAM
     Indication: EPILEPSY
     Dosage: 1 ? TABLET IN THE MORNING AND 1 TABLET AT NIGHT
     Route: 048
     Dates: start: 201801

REACTIONS (5)
  - Drug interaction [Recovered/Resolved]
  - Off label use [Unknown]
  - Agitation [Recovered/Resolved]
  - Seizure [Recovered/Resolved]
  - Insomnia [Recovered/Resolved]

NARRATIVE: CASE EVENT DATE: 201801
